FAERS Safety Report 9139189 (Version 1)
Quarter: 2013Q1

REPORT INFORMATION
  Report Type: Spontaneous
  Country: US (occurrence: US)
  Receive Date: 20130305
  Receipt Date: 20130305
  Transmission Date: 20140127
  Serious: Yes (Hospitalization, Other)
  Sender: FDA-Public Use
  Company Number: US-CELGENEUS-163-21880-13011217

PATIENT
  Sex: Female

DRUGS (1)
  1. REVLIMID [Suspect]
     Indication: PLASMA CELL MYELOMA
     Dosage: 10 MILLIGRAM
     Route: 048
     Dates: start: 20121211

REACTIONS (6)
  - Delusion [Unknown]
  - Hip fracture [Unknown]
  - Fall [Unknown]
  - Gastrointestinal infection [Unknown]
  - Chest pain [Unknown]
  - Dizziness [Unknown]
